FAERS Safety Report 16031265 (Version 2)
Quarter: 2019Q1

REPORT INFORMATION
  Report Type: Spontaneous
  Country: US (occurrence: US)
  Receive Date: 20190304
  Receipt Date: 20190325
  Transmission Date: 20190418
  Serious: No
  Sender: FDA-Public Use
  Company Number: US-TEVA-2019-US-1010657

PATIENT
  Age: 65 Year
  Sex: Male

DRUGS (1)
  1. MINOXIDIL SOLUTION ACTAVIS [Suspect]
     Active Substance: MINOXIDIL
     Indication: ALOPECIA
     Dosage: MORNING AND EVENING
     Route: 065

REACTIONS (3)
  - Scab [Unknown]
  - Nightmare [Unknown]
  - Application site pruritus [Unknown]

NARRATIVE: CASE EVENT DATE: 20190205
